FAERS Safety Report 5218233-3 (Version None)
Quarter: 2007Q1

REPORT INFORMATION
  Report Type: 
  Country: None (occurrence: None)
  Receive Date: 20061130
  Receipt Date: 20060421
  Transmission Date: 20070707
  Serious: Yes (Hospitalization)
  Sender: FDA-Public Use
  Company Number: US_0509121768

PATIENT
  Age: 44 Year
  Sex: Male
  Weight: 97.5 kg

DRUGS (9)
  1. ZYPREXA [Suspect]
     Dosage: 7.5 MG, ORAL
     Route: 048
     Dates: start: 20001001
  2. LOTENSIN [Concomitant]
  3. MOTRIN [Concomitant]
  4. PERPHENAZINE [Concomitant]
  5. SERZONE [Concomitant]
  6. ATIVAN [Concomitant]
  7. COGENTIN [Concomitant]
  8. TERAZOSIN HYDROCHLORIDE [Concomitant]
  9. LISINOPRIL [Concomitant]

REACTIONS (3)
  - BLOOD TRIGLYCERIDES INCREASED [None]
  - DIABETES MELLITUS [None]
  - WEIGHT DECREASED [None]
